FAERS Safety Report 17083999 (Version 1)
Quarter: 2019Q4

REPORT INFORMATION
  Report Type: Report from Study
  Country: FR (occurrence: FR)
  Receive Date: 20191127
  Receipt Date: 20191127
  Transmission Date: 20200122
  Serious: Yes (Death, Life-Threatening, Hospitalization, Other)
  Sender: FDA-Public Use
  Company Number: PHHY2018FR059257

PATIENT
  Age: 68 Year
  Sex: Male

DRUGS (36)
  1. CERTICAN [Suspect]
     Active Substance: EVEROLIMUS
     Dosage: 5 MG, QD
     Route: 065
     Dates: start: 20150117, end: 20150126
  2. CERTICAN [Suspect]
     Active Substance: EVEROLIMUS
     Dosage: 4 MG, QD
     Route: 065
     Dates: start: 20150723, end: 20170322
  3. TACROLIMUS. [Concomitant]
     Active Substance: TACROLIMUS
     Dosage: 1 MG, BID
     Route: 065
     Dates: start: 20180205, end: 20180217
  4. CORTANCYL [Concomitant]
     Active Substance: PREDNISONE
     Dosage: 2 MG, QD
     Route: 065
     Dates: start: 20150115, end: 20150422
  5. PROGRAF [Concomitant]
     Active Substance: TACROLIMUS
     Dosage: 2 MG, QD
     Route: 065
     Dates: start: 20180211, end: 20180216
  6. PROGRAF [Concomitant]
     Active Substance: TACROLIMUS
     Dosage: 1 MG, QD
     Route: 065
     Dates: start: 20180220, end: 20180223
  7. CERTICAN [Suspect]
     Active Substance: EVEROLIMUS
     Dosage: 3 MG, QD
     Route: 065
     Dates: start: 20180110, end: 20180110
  8. MYFORTIC [Suspect]
     Active Substance: MYCOPHENOLATE SODIUM
     Dosage: 720 MG, QD
     Route: 065
     Dates: start: 20180120, end: 20180120
  9. TACROLIMUS. [Concomitant]
     Active Substance: TACROLIMUS
     Indication: IMMUNOSUPPRESSANT DRUG THERAPY
     Dosage: 1 MG, BID
     Route: 065
     Dates: start: 20180122, end: 20180131
  10. PROGRAF [Concomitant]
     Active Substance: TACROLIMUS
     Dosage: 1.5 MG, QD
     Route: 065
     Dates: start: 20180130, end: 20180130
  11. PROGRAF [Concomitant]
     Active Substance: TACROLIMUS
     Indication: PRODUCT USED FOR UNKNOWN INDICATION
     Dosage: 2 MG
     Route: 065
     Dates: start: 20180122, end: 20180129
  12. PROGRAF [Concomitant]
     Active Substance: TACROLIMUS
     Dosage: 1 MG, QD
     Route: 065
     Dates: start: 20180205, end: 20180205
  13. PROGRAF [Concomitant]
     Active Substance: TACROLIMUS
     Dosage: 1 MG, QD
     Route: 065
     Dates: start: 20180217, end: 20180217
  14. CERTICAN [Suspect]
     Active Substance: EVEROLIMUS
     Indication: LIVER TRANSPLANT
     Dosage: 3 MG/KG, QD
     Route: 048
     Dates: start: 20140225
  15. CERTICAN [Suspect]
     Active Substance: EVEROLIMUS
     Dosage: 8 MG, QD
     Route: 065
     Dates: start: 20140615, end: 20150116
  16. MYFORTIC [Suspect]
     Active Substance: MYCOPHENOLATE SODIUM
     Dosage: 1080 MG, QD
     Route: 065
     Dates: start: 20171208, end: 20180119
  17. TACROLIMUS. [Concomitant]
     Active Substance: TACROLIMUS
     Dosage: 0.5 MG, BID
     Route: 065
     Dates: start: 20180219, end: 20180224
  18. CORTANCYL [Concomitant]
     Active Substance: PREDNISONE
     Dosage: 3 MG, QD
     Route: 065
     Dates: start: 20141002, end: 20150114
  19. PROGRAF [Concomitant]
     Active Substance: TACROLIMUS
     Dosage: 0.5 MG, QD
     Route: 065
     Dates: start: 20180219, end: 20180219
  20. PROGRAF [Concomitant]
     Active Substance: TACROLIMUS
     Dosage: 1 MG, QD
     Route: 065
     Dates: start: 20180228, end: 20180307
  21. CERTICAN [Suspect]
     Active Substance: EVEROLIMUS
     Dosage: 4 MG, QD
     Route: 065
     Dates: start: 20150127, end: 20150204
  22. CERTICAN [Suspect]
     Active Substance: EVEROLIMUS
     Dosage: 2 MG, QD
     Route: 065
     Dates: start: 20150214, end: 20150722
  23. CERTICAN [Suspect]
     Active Substance: EVEROLIMUS
     Dosage: 6 MG, QD
     Route: 065
     Dates: start: 20170323, end: 20180109
  24. PROGRAF [Concomitant]
     Active Substance: TACROLIMUS
     Dosage: 0.5 MG, QD
     Route: 065
     Dates: start: 20180224, end: 20180224
  25. CERTICAN [Suspect]
     Active Substance: EVEROLIMUS
     Dosage: 2.5 MG, QD
     Route: 065
     Dates: start: 20150205, end: 20150213
  26. CORTANCYL [Concomitant]
     Active Substance: PREDNISONE
     Indication: PRODUCT USED FOR UNKNOWN INDICATION
     Dosage: 5 MG, QD
     Route: 065
     Dates: start: 20140424, end: 20141001
  27. PROGRAF [Concomitant]
     Active Substance: TACROLIMUS
     Dosage: 0.5 MG, QD
     Route: 065
     Dates: start: 20180131, end: 20180131
  28. PROGRAF [Concomitant]
     Active Substance: TACROLIMUS
     Dosage: 1.5 MG, QD
     Route: 065
     Dates: start: 20180210, end: 20180210
  29. CERTICAN [Suspect]
     Active Substance: EVEROLIMUS
     Dosage: 3 MG, QD
     Route: 065
     Dates: start: 20180111, end: 20180121
  30. TACROLIMUS. [Concomitant]
     Active Substance: TACROLIMUS
     Dosage: 0.5 MG, BID
     Route: 065
     Dates: start: 20180227, end: 20180308
  31. PROGRAF [Concomitant]
     Active Substance: TACROLIMUS
     Dosage: 2 MG, QD
     Route: 065
     Dates: start: 20180206, end: 20180209
  32. PROGRAF [Concomitant]
     Active Substance: TACROLIMUS
     Dosage: 0.5 MG, QD
     Route: 065
     Dates: start: 20180308, end: 20180308
  33. PROGRAF [Concomitant]
     Active Substance: TACROLIMUS
     Dosage: 0.5 MG, QD
     Route: 065
     Dates: start: 20180316, end: 20180319
  34. MYFORTIC [Suspect]
     Active Substance: MYCOPHENOLATE SODIUM
     Indication: LIVER TRANSPLANT
     Dosage: 1440 MG, QD
     Route: 065
     Dates: start: 20140201, end: 20171207
  35. CELLCEPT [Concomitant]
     Active Substance: MYCOPHENOLATE MOFETIL\MYCOPHENOLATE MOFETIL HYDROCHLORIDE
     Indication: PRODUCT USED FOR UNKNOWN INDICATION
     Dosage: 1000 MG
     Route: 065
     Dates: start: 20180121, end: 20180321
  36. PROGRAF [Concomitant]
     Active Substance: TACROLIMUS
     Dosage: 0.5 MG, QD
     Route: 065
     Dates: start: 20180227, end: 20180227

REACTIONS (5)
  - Pneumonia bacterial [Not Recovered/Not Resolved]
  - Bacterial infection [Fatal]
  - Fungal infection [Fatal]
  - Acute respiratory distress syndrome [Fatal]
  - Influenza [Fatal]

NARRATIVE: CASE EVENT DATE: 20180120
